FAERS Safety Report 5099565-9 (Version None)
Quarter: 2006Q3

REPORT INFORMATION
  Report Type: 
  Country: None (occurrence: None)
  Receive Date: 20060908
  Receipt Date: 20060904
  Transmission Date: 20061208
  Serious: Yes (Death, Hospitalization)
  Sender: FDA-Public Use
  Company Number: GB-JNJFOC-20060803584

PATIENT
  Sex: Female
  Weight: 67.5 kg

DRUGS (6)
  1. YONDELIS [Suspect]
     Indication: OVARIAN CANCER
     Route: 042
  2. DOXIL [Suspect]
     Indication: OVARIAN CANCER
     Route: 042
  3. CITALOPRAM [Concomitant]
     Indication: DEPRESSION
     Route: 048
  4. CHLORHEXIDINE [Concomitant]
     Route: 048
  5. NORMAL SALINE [Concomitant]
     Route: 042
  6. BLOOD TRANSFUSION [Concomitant]
     Route: 042

REACTIONS (4)
  - DEHYDRATION [None]
  - HEPATIC FAILURE [None]
  - NEUTROPENIC SEPSIS [None]
  - RENAL FAILURE ACUTE [None]
